FAERS Safety Report 4576267-6 (Version None)
Quarter: 2005Q1

REPORT INFORMATION
  Report Type: 
  Country: None (occurrence: None)
  Receive Date: 20050119
  Receipt Date: 20041116
  Transmission Date: 20050727
  Serious: Yes (Hospitalization)
  Sender: FDA-Public Use
  Company Number: A03200403900

PATIENT
  Sex: Male

DRUGS (6)
  1. PLAVIX [Suspect]
     Indication: ARTERIOGRAM CORONARY
     Dosage: 75 MG QD - ORAL
     Route: 048
     Dates: start: 20041109, end: 20041101
  2. ATORVASTATIN [Concomitant]
  3. ACETYLSALICYLIC ACID [Concomitant]
  4. TERAZOSIN HYDROCHLORIDE [Concomitant]
  5. ALLOPURINOL [Concomitant]
  6. LOSARTAN POTASSIUM [Concomitant]

REACTIONS (1)
  - CEREBRAL HAEMORRHAGE [None]
